FAERS Safety Report 10954073 (Version 1)
Quarter: 2015Q1

REPORT INFORMATION
  Report Type: Report from Study
  Country: US (occurrence: US)
  Receive Date: 20150325
  Receipt Date: 20150325
  Transmission Date: 20150721
  Serious: Yes (Hospitalization)
  Sender: FDA-Public Use
  Company Number: US-AMGEN-2014-1753

PATIENT
  Age: 73 Year
  Sex: Male
  Weight: 81.73 kg

DRUGS (5)
  1. DEXAMETHASONE. [Concomitant]
     Active Substance: DEXAMETHASONE
     Indication: PLASMA CELL MYELOMA
  2. CARFILZOMIB [Suspect]
     Active Substance: CARFILZOMIB
     Indication: PLASMA CELL MYELOMA
     Dosage: FREQ. TEXT: DAYS 1, 2, 8, 9, 15 + 16
     Route: 042
     Dates: start: 20140429, end: 20140805
  3. IBRUTINIB [Concomitant]
     Active Substance: IBRUTINIB
     Indication: PLASMA CELL MYELOMA
     Dosage: 560 MG, UNK
     Route: 048
     Dates: start: 20140507, end: 20140805
  4. CARFILZOMIB [Suspect]
     Active Substance: CARFILZOMIB
     Dosage: FREQ. TEXT: DAYS 1, 2, 8, 9, 15 + 16
     Route: 042
     Dates: start: 20140819
  5. IBRUTINIB [Concomitant]
     Active Substance: IBRUTINIB
     Dosage: 560 UNK, UNK
     Route: 048
     Dates: start: 20140812

REACTIONS (1)
  - Clostridium difficile colitis [Recovered/Resolved]

NARRATIVE: CASE EVENT DATE: 20140806
